FAERS Safety Report 11867747 (Version 1)
Quarter: 2015Q4

REPORT INFORMATION
  Report Type: Spontaneous
  Country: TW (occurrence: TW)
  Receive Date: 20151224
  Receipt Date: 20151224
  Transmission Date: 20160305
  Serious: Yes (Death)
  Sender: FDA-Public Use
  Company Number: TW-009507513-1512TWN011349

PATIENT
  Age: 80 Year
  Sex: Female

DRUGS (3)
  1. MK-3009 [Suspect]
     Active Substance: DAPTOMYCIN
     Indication: ENTEROCOCCAL INFECTION
  2. MK-3009 [Suspect]
     Active Substance: DAPTOMYCIN
     Indication: DEVICE RELATED INFECTION
     Dosage: 6 MG/KG, CYCLICAL (AT THE END OF EACH HEMODIALYSIS)
     Route: 042
  3. MK-3009 [Suspect]
     Active Substance: DAPTOMYCIN
     Indication: STAPHYLOCOCCAL SEPSIS

REACTIONS (1)
  - Treatment failure [Fatal]
